FAERS Safety Report 14692676 (Version 3)
Quarter: 2018Q2

REPORT INFORMATION
  Report Type: Spontaneous
  Country: JP (occurrence: JP)
  Receive Date: 20180329
  Receipt Date: 20180601
  Transmission Date: 20180711
  Serious: Yes (Hospitalization, Other)
  Sender: FDA-Public Use
  Company Number: JP-009507513-1706JPN001772J

PATIENT
  Age: 71 Year
  Sex: Male
  Weight: 61 kg

DRUGS (9)
  1. RANMARK [Concomitant]
     Active Substance: DENOSUMAB
     Indication: ACRAL LENTIGINOUS MELANOMA
     Dosage: 120 MG, QD
     Route: 051
     Dates: start: 20161109, end: 20170809
  2. CLARITHROMYCIN. [Concomitant]
     Active Substance: CLARITHROMYCIN
     Dosage: 200 MG, BID
     Route: 048
     Dates: start: 20170501, end: 20170811
  3. REBAMIPIDE [Concomitant]
     Active Substance: REBAMIPIDE
     Dosage: 100 MG, BID
     Route: 048
  4. CELECOX [Concomitant]
     Active Substance: CELECOXIB
     Dosage: 100 MG, BID
     Route: 048
     Dates: end: 20170802
  5. COCARL [Concomitant]
     Active Substance: ACETAMINOPHEN
     Indication: PROPHYLAXIS
     Dosage: 400 MG, QD
     Route: 048
     Dates: start: 20160901, end: 20170802
  6. LIXIANA [Concomitant]
     Active Substance: EDOXABAN TOSYLATE
     Dosage: 30 MG, QD
     Route: 048
     Dates: start: 20160901, end: 20170804
  7. KEYTRUDA [Suspect]
     Active Substance: PEMBROLIZUMAB
     Indication: ACRAL LENTIGINOUS MELANOMA
     Dosage: 2 MG/KG, Q3W
     Route: 041
     Dates: start: 20170525, end: 20170727
  8. TALION [Concomitant]
     Active Substance: BEPOTASTINE
     Indication: PROPHYLAXIS
     Dosage: 10 MG, BID
     Route: 048
     Dates: start: 20160901, end: 20170802
  9. DENOTAS [Concomitant]
     Active Substance: CALCIUM CARBONATE\CHOLECALCIFEROL\MAGNESIUM CARBONATE
     Indication: ACRAL LENTIGINOUS MELANOMA
     Dosage: 2 DF, QD
     Route: 048
     Dates: start: 20161109

REACTIONS (8)
  - Dizziness [Unknown]
  - Insomnia [Not Recovered/Not Resolved]
  - Dyspnoea [Not Recovered/Not Resolved]
  - Duodenal ulcer [Recovering/Resolving]
  - Restlessness [Recovered/Resolved]
  - Cough [Recovering/Resolving]
  - Malaise [Recovered/Resolved]
  - Thirst [Recovered/Resolved]

NARRATIVE: CASE EVENT DATE: 20170526
